FAERS Safety Report 15578142 (Version 2)
Quarter: 2018Q4

REPORT INFORMATION
  Report Type: Report from Study
  Country: US (occurrence: US)
  Receive Date: 20181102
  Receipt Date: 20181119
  Transmission Date: 20190205
  Serious: No
  Sender: FDA-Public Use
  Company Number: PHEH2018US045800

PATIENT
  Sex: Female

DRUGS (2)
  1. ENTRESTO [Suspect]
     Active Substance: SACUBITRIL\VALSARTAN
     Indication: CARDIAC FAILURE CONGESTIVE
  2. ENTRESTO [Suspect]
     Active Substance: SACUBITRIL\VALSARTAN
     Indication: CARDIAC FAILURE
     Route: 048

REACTIONS (9)
  - Restless legs syndrome [Unknown]
  - Vision blurred [Unknown]
  - Memory impairment [Unknown]
  - Muscle spasms [Unknown]
  - Dyspnoea [Unknown]
  - Fall [Unknown]
  - Back pain [Unknown]
  - Concomitant disease aggravated [Unknown]
  - Musculoskeletal pain [Unknown]
